FAERS Safety Report 8095097-4 (Version None)
Quarter: 2012Q1

REPORT INFORMATION
  Report Type: 
  Country: None (occurrence: None)
  Receive Date: 20120125
  Receipt Date: 20120110
  Transmission Date: 20120608
  Serious: Yes (Other)
  Sender: FDA-Public Use
  Company Number: US-1189122

PATIENT
  Age: 76 Year
  Weight: 72.5755 kg

DRUGS (8)
  1. TETRACAINE POLYGYL STERILE OPHTHALMIC SOLUTION [Suspect]
     Indication: CATARACT OPERATION
     Dosage: (OPHTHALMIC)
     Route: 047
     Dates: start: 20111014, end: 20111014
  2. NEVANAC [Suspect]
     Indication: CATARACT OPERATION
     Dosage: (OPHTHALMIC)
     Route: 047
  3. POVIDONE IODINE [Concomitant]
  4. BSS [Suspect]
     Indication: CATARACT OPERATION
     Dosage: (INTROCULAR) ; (INTRAOCULAR)
     Route: 031
     Dates: start: 20111014, end: 20111014
  5. BSS [Suspect]
     Indication: CATARACT OPERATION
     Dosage: (INTROCULAR) ; (INTRAOCULAR)
     Route: 031
     Dates: start: 20111014, end: 20111014
  6. VIGAMOX [Suspect]
     Indication: CATARACT OPERATION
     Dosage: (OPHTHALMIC)
     Route: 047
  7. PREDNISOLONE ACETATE [Suspect]
     Indication: CATARACT OPERATION
     Dosage: (OPHTHALMIC)
     Route: 047
  8. BSS [Suspect]

REACTIONS (3)
  - TOXIC ANTERIOR SEGMENT SYNDROME [None]
  - PROCEDURAL COMPLICATION [None]
  - OFF LABEL USE [None]
